FAERS Safety Report 8327492-X (Version None)
Quarter: 2012Q2

REPORT INFORMATION
  Report Type: 
  Country: None (occurrence: None)
  Receive Date: 20120502
  Receipt Date: 20120423
  Transmission Date: 20120825
  Serious: Yes (Hospitalization)
  Sender: FDA-Public Use
  Company Number: US-BAYER-2012-034935

PATIENT
  Age: 17 Year
  Sex: Female
  Weight: 66 kg

DRUGS (11)
  1. PHENERGAN [Concomitant]
     Indication: NAUSEA
     Dosage: EVERY 6 HOURS AS NEEDED
     Route: 061
  2. DILAUDID [Concomitant]
     Indication: PAIN
     Dosage: 1MG  EVERY 3 HOURS AS NEEDED
  3. YASMIN [Suspect]
     Indication: CONTRACEPTION
     Dosage: UNK
     Dates: start: 20100801, end: 20101101
  4. CEFZIL [Concomitant]
     Dosage: 1 TEASPOON TWICE DAILY
  5. HYDROCODONE BITARTRATE [Concomitant]
     Indication: PAIN
     Dosage: UNK UNK, PRN
  6. NYSTATIN [Concomitant]
  7. AYR SALINE [Concomitant]
  8. TYLENOL W/ CODEINE [Concomitant]
     Indication: PAIN
     Dosage: 2 TEASPOONS EVERY 4 HOURS AS NEEDED
  9. BENADRYL [Concomitant]
  10. PERCOCET [Concomitant]
  11. MECCA MOUTH RINSE [Concomitant]
     Dosage: 15 ML GARGLE AND SPIT 4 TIMES DAILY

REACTIONS (7)
  - INJURY [None]
  - PAIN [None]
  - EMOTIONAL DISTRESS [None]
  - PULMONARY EMBOLISM [None]
  - GENERAL PHYSICAL HEALTH DETERIORATION [None]
  - ANXIETY [None]
  - DYSPNOEA [None]
